FAERS Safety Report 22092448 (Version 2)
Quarter: 2023Q1

REPORT INFORMATION
  Report Type: Spontaneous
  Country: JP (occurrence: JP)
  Receive Date: 20230314
  Receipt Date: 20230330
  Transmission Date: 20230418
  Serious: Yes (Hospitalization, Other)
  Sender: FDA-Public Use
  Company Number: JP-Accord-303472

PATIENT
  Age: 7 Decade
  Sex: Female

DRUGS (7)
  1. ESCITALOPRAM [Interacting]
     Active Substance: ESCITALOPRAM OXALATE
     Indication: Major depression
  2. TRAZODONE HYDROCHLORIDE [Interacting]
     Active Substance: TRAZODONE HYDROCHLORIDE
     Indication: Major depression
  3. CELECOXIB [Interacting]
     Active Substance: CELECOXIB
     Indication: Spondylolisthesis
  4. LOXOPROFEN [Concomitant]
     Active Substance: LOXOPROFEN
     Indication: Spondylolisthesis
     Dosage: AS-NEEDED
  5. CELECOXIB [Interacting]
     Active Substance: CELECOXIB
     Indication: Pain
  6. LOXOPROFEN [Concomitant]
     Active Substance: LOXOPROFEN
     Indication: Musculoskeletal pain
     Dosage: AS-NEEDED
  7. LOXOPROFEN [Concomitant]
     Active Substance: LOXOPROFEN
     Indication: Pain in extremity
     Dosage: AS-NEEDED

REACTIONS (2)
  - Drug interaction [Unknown]
  - Activation syndrome [Recovered/Resolved]
